FAERS Safety Report 8533513-1 (Version None)
Quarter: 2012Q3

REPORT INFORMATION
  Report Type: 
  Country: None (occurrence: None)
  Receive Date: 20120724
  Receipt Date: 20120711
  Transmission Date: 20120928
  Serious: Yes (Hospitalization, Other)
  Sender: FDA-Public Use
  Company Number: US-ELI_LILLY_AND_COMPANY-US201207004145

PATIENT
  Sex: Female
  Weight: 53.515 kg

DRUGS (4)
  1. LANTUS [Concomitant]
     Indication: DIABETES MELLITUS
     Dosage: 14 U, EACH EVENING
  2. HUMALOG [Suspect]
     Indication: DIABETES MELLITUS
     Dosage: 8 U, TID
     Dates: start: 20110909
  3. ANTIHYPERTENSIVES [Concomitant]
     Indication: BLOOD PRESSURE
     Dosage: UNK
  4. HUMALOG [Suspect]
     Dosage: UNK, PRN

REACTIONS (13)
  - CONFUSIONAL STATE [None]
  - VOMITING [None]
  - STRESS [None]
  - DIZZINESS [None]
  - BLOOD GLUCOSE DECREASED [None]
  - LOSS OF CONSCIOUSNESS [None]
  - FEELING ABNORMAL [None]
  - HYPOAESTHESIA [None]
  - DRUG INEFFECTIVE [None]
  - BLOOD GLUCOSE INCREASED [None]
  - HYPERTENSION [None]
  - MIGRAINE [None]
  - PRESYNCOPE [None]
